FAERS Safety Report 12370809 (Version 2)
Quarter: 2016Q2

REPORT INFORMATION
  Report Type: Spontaneous
  Country: US (occurrence: US)
  Receive Date: 20160516
  Receipt Date: 20160620
  Transmission Date: 20160815
  Serious: Yes (Other)
  Sender: FDA-Public Use
  Company Number: US-009507513-1605USA006462

PATIENT
  Age: 44 Year
  Sex: Female
  Weight: 58.5 kg

DRUGS (4)
  1. TRI-SPRINTEC [Concomitant]
     Active Substance: ETHINYL ESTRADIOL\NORGESTIMATE
     Dosage: UNK
  2. MELATONIN [Concomitant]
     Active Substance: MELATONIN
     Dosage: UNK, SOMETIMES
  3. BELSOMRA [Suspect]
     Active Substance: SUVOREXANT
     Indication: INSOMNIA
     Dosage: ONCE DAILY, 10 PILLS PRESCRIBED
     Route: 048
     Dates: start: 20150831
  4. VITAMINS (UNSPECIFIED) [Concomitant]
     Active Substance: VITAMINS
     Dosage: UNK

REACTIONS (7)
  - Feeling abnormal [Not Recovered/Not Resolved]
  - Incoherent [Not Recovered/Not Resolved]
  - Paralysis [Not Recovered/Not Resolved]
  - Drug ineffective [Unknown]
  - Hallucination, auditory [Not Recovered/Not Resolved]
  - Heart rate increased [Not Recovered/Not Resolved]
  - Nightmare [Not Recovered/Not Resolved]

NARRATIVE: CASE EVENT DATE: 20150831
